FAERS Safety Report 12396646 (Version 1)
Quarter: 2016Q2

REPORT INFORMATION
  Report Type: Spontaneous
  Country: None (occurrence: None)
  Receive Date: 20160523
  Receipt Date: 20160523
  Transmission Date: 20160815
  Serious: Yes (Disabling)
  Sender: FDA-Public Use
  Company Number: None

PATIENT
  Age: 30 Year
  Sex: Female
  Weight: 49.9 kg

DRUGS (2)
  1. LEVOFLOXACIN 100 MG YUHAN [Suspect]
     Active Substance: LEVOFLOXACIN
     Indication: URINARY TRACT INFECTION
     Dosage: IN THE MORNING
     Route: 048
     Dates: start: 20150627, end: 20150628
  2. DAILY MULTVITAMIN [Concomitant]

REACTIONS (7)
  - Tendonitis [None]
  - Pain [None]
  - Arthralgia [None]
  - Local swelling [None]
  - Myalgia [None]
  - Tendon pain [None]
  - Muscle swelling [None]

NARRATIVE: CASE EVENT DATE: 20150628
